FAERS Safety Report 8936891 (Version 8)
Quarter: 2013Q3

REPORT INFORMATION
  Report Type: Report from Study
  Country: NO (occurrence: NO)
  Receive Date: 20121130
  Receipt Date: 20130819
  Transmission Date: 20140515
  Serious: Yes (Hospitalization, Other)
  Sender: FDA-Public Use
  Company Number: PHHY2012NO108952

PATIENT
  Age: 75 Year
  Sex: Male
  Weight: 73 kg

DRUGS (19)
  1. DOCETAXEL [Suspect]
     Indication: NON-SMALL CELL LUNG CANCER STAGE IV
     Dosage: 75 MG/M2, TIW
     Route: 042
     Dates: start: 20121026, end: 20121119
  2. TRIATEC [Concomitant]
     Indication: HYPERTENSION
  3. SOBRIL [Concomitant]
  4. FRAGMIN [Concomitant]
  5. PARACET [Concomitant]
     Indication: PAIN
  6. SELO-ZOK [Concomitant]
     Indication: HYPERTENSION
  7. ALBYL-E [Concomitant]
     Indication: ANTICOAGULANT THERAPY
  8. MONOKET [Concomitant]
     Indication: HYPERTENSION
  9. LEVAXIN [Concomitant]
     Indication: HYPOTHYROIDISM
  10. NYCOPLUS B-TOTAL [Concomitant]
     Indication: PROPHYLAXIS
  11. REMERON [Concomitant]
     Indication: DEPRESSION
  12. LIPITOR [Concomitant]
  13. KALEORID [Concomitant]
     Indication: PROPHYLAXIS
  14. FENTANYL [Concomitant]
     Indication: PAIN
  15. FURIX [Concomitant]
     Indication: POLYURIA
     Dates: start: 20121103, end: 20121109
  16. DEXAMETHASONE [Concomitant]
     Indication: PREMEDICATION
     Dosage: 32 MG, BID 32 MG IN THE MORNING AND EVENING THE DAY BEFORE, SAME DAY AND THE DAY AFTER CHEMOTHERAPY
  17. DEXAMETHASONE [Concomitant]
     Indication: PREMEDICATION
  18. MIRTAZAPINE [Concomitant]
     Indication: DEPRESSION
  19. ATORVASTATIN CALCIUM [Concomitant]

REACTIONS (8)
  - C-reactive protein increased [Unknown]
  - White blood cell count decreased [Unknown]
  - Dehydration [Recovered/Resolved]
  - Bone marrow failure [Unknown]
  - Neutropenia [Unknown]
  - Haemoglobin decreased [Unknown]
  - Urinary tract infection [Recovered/Resolved]
  - Diarrhoea [Recovered/Resolved]
